FAERS Safety Report 9374404 (Version 2)
Quarter: 2013Q3

REPORT INFORMATION
  Report Type: Report from Study
  Country: VN (occurrence: VN)
  Receive Date: 20130628
  Receipt Date: 20130705
  Transmission Date: 20140515
  Serious: Yes (Death, Hospitalization)
  Sender: FDA-Public Use
  Company Number: PHHY2013VN066548

PATIENT
  Age: 31 Year
  Sex: Female
  Weight: 50 kg

DRUGS (2)
  1. GLIVEC [Suspect]
     Indication: CHRONIC MYELOID LEUKAEMIA
     Dosage: 400 MG, QD
     Route: 048
     Dates: start: 20120822, end: 20121205
  2. GLIVEC [Suspect]
     Dosage: 300 MG, QD
     Route: 048
     Dates: start: 20121205, end: 20121229

REACTIONS (8)
  - Tracheal stenosis [Fatal]
  - Sepsis [Fatal]
  - Pyrexia [Fatal]
  - Pulmonary alveolar haemorrhage [Fatal]
  - Dyspnoea [Fatal]
  - Cough [Fatal]
  - Productive cough [Fatal]
  - Respiratory failure [Fatal]
